FAERS Safety Report 8869111 (Version 1)
Quarter: 2012Q4

REPORT INFORMATION
  Report Type: Spontaneous
  Country: JP (occurrence: None)
  Receive Date: 20121022
  Receipt Date: 20121022
  Transmission Date: 20130627
  Serious: Yes (Hospitalization)
  Sender: FDA-Public Use
  Company Number: PNIS20120032

PATIENT
  Age: 72 Year
  Sex: Male

DRUGS (1)
  1. PREDNISOLONE [Suspect]
     Indication: INTERSTITIAL LUNG DISEASE
     Dosage: oral solution 15MG/ 5ML
     Route: 048

REACTIONS (5)
  - Pustular psoriasis [None]
  - Psoriasis [None]
  - Dehydration [None]
  - Pyrexia [None]
  - Fatigue [None]
